FAERS Safety Report 6916406-2 (Version None)
Quarter: 2010Q3

REPORT INFORMATION
  Report Type: 
  Country: None (occurrence: None)
  Receive Date: 20100810
  Receipt Date: 20100729
  Transmission Date: 20110219
  Serious: Yes (Hospitalization)
  Sender: FDA-Public Use
  Company Number: ES-ELI_LILLY_AND_COMPANY-ES201007007447

PATIENT
  Sex: Female
  Weight: 55 kg

DRUGS (7)
  1. FORTEO [Suspect]
     Indication: OSTEOPOROSIS
     Dosage: 20 UG, DAILY (1/D)
     Route: 058
     Dates: start: 20100527
  2. CONDROSULF [Concomitant]
     Indication: OSTEOARTHRITIS
     Dosage: 800 MG, DAILY (1/D)
     Route: 048
  3. NORPRAMIN [Concomitant]
     Dosage: 20 MG, DAILY (1/D)
     Route: 048
  4. STILNOX [Concomitant]
     Indication: SLEEP DISORDER
     Dosage: 10 MG, DAILY (1/D)
     Route: 048
  5. ESERTIA [Concomitant]
     Indication: DEPRESSION
     Dosage: 10 MG, DAILY (1/D)
     Route: 048
  6. ARTHROTEC [Concomitant]
     Dosage: 1 D/F, DAILY (1/D)
     Route: 048
     Dates: start: 20100718
  7. PANTECTA [Concomitant]
     Dosage: 20 MG, DAILY (1/D)
     Route: 048

REACTIONS (4)
  - FALL [None]
  - HEAD INJURY [None]
  - HUMERUS FRACTURE [None]
  - PERIORBITAL HAEMATOMA [None]
